FAERS Safety Report 6573568-7 (Version None)
Quarter: 2010Q1

REPORT INFORMATION
  Report Type: 
  Country: None (occurrence: None)
  Receive Date: 20100208
  Receipt Date: 20100127
  Transmission Date: 20100710
  Serious: Yes (Other)
  Sender: FDA-Public Use
  Company Number: US-ROCHE-682207

PATIENT
  Age: 67 Year
  Sex: Male
  Weight: 87.1 kg

DRUGS (3)
  1. BONIVA [Suspect]
     Route: 065
  2. NORVASC [Concomitant]
  3. DIOVAN [Concomitant]

REACTIONS (4)
  - BONE PAIN [None]
  - BURSA DISORDER [None]
  - FEELINGS OF WORTHLESSNESS [None]
  - RENAL PAIN [None]
